FAERS Safety Report 7438387-8 (Version None)
Quarter: 2011Q2

REPORT INFORMATION
  Report Type: 
  Country: None (occurrence: None)
  Receive Date: 20110426
  Receipt Date: 20110404
  Transmission Date: 20111010
  Serious: Yes (Hospitalization)
  Sender: FDA-Public Use
  Company Number: US-BAYER-201039882NA

PATIENT
  Age: 51 Year
  Sex: Female
  Weight: 56.236 kg

DRUGS (10)
  1. YAZ [Suspect]
     Indication: ACNE
     Dosage: UNK UNK, QD
     Route: 048
     Dates: end: 20090506
  2. YASMIN [Suspect]
     Indication: ACNE
     Dosage: UNK UNK, QD
     Route: 048
     Dates: end: 20090506
  3. BORIVAN [Concomitant]
  4. ATENOLOL [Concomitant]
  5. PROZAC [Concomitant]
  6. COPAXONE [Concomitant]
  7. TOPAMAX [Concomitant]
  8. YASMIN [Suspect]
     Indication: MENSTRUAL CYCLE MANAGEMENT
  9. YAZ [Suspect]
     Indication: MENSTRUAL CYCLE MANAGEMENT
  10. LAMISIL [Concomitant]

REACTIONS (3)
  - ANXIETY [None]
  - PULMONARY EMBOLISM [None]
  - PAIN [None]
